FAERS Safety Report 8225957-2 (Version None)
Quarter: 2012Q1

REPORT INFORMATION
  Report Type: 
  Country: None (occurrence: None)
  Receive Date: 20120321
  Receipt Date: 20120315
  Transmission Date: 20120608
  Serious: Yes (Hospitalization, Other)
  Sender: FDA-Public Use
  Company Number: PHHY2012GB022864

PATIENT
  Age: 64 Year
  Sex: Male

DRUGS (7)
  1. METHOTREXATE [Suspect]
  2. OMEPRAZOLE [Concomitant]
  3. VITAMIN B-12 [Concomitant]
     Dosage: 1 DF, ONCE EVERY 3 MONTHS
  4. DEXAMETHASONE [Concomitant]
  5. REMICADE [Suspect]
     Dosage: 5 MG/KG, PER 8 WEEKS
     Route: 042
     Dates: start: 20120101
  6. REMICADE [Suspect]
     Indication: CROHN'S DISEASE
     Dosage: UNK
     Dates: start: 20100401
  7. FOLIC ACID [Concomitant]
     Dosage: 5 MG, TWICE WEEKLY

REACTIONS (8)
  - HYPERPARATHYROIDISM PRIMARY [None]
  - HYPERCALCAEMIA [None]
  - MALAISE [None]
  - LOWER RESPIRATORY TRACT INFECTION [None]
  - HYPERGAMMAGLOBULINAEMIA BENIGN MONOCLONAL [None]
  - COUGH [None]
  - RENAL FAILURE ACUTE [None]
  - DYSPNOEA [None]
